FAERS Safety Report 9242768 (Version 4)
Quarter: 2013Q3

REPORT INFORMATION
  Report Type: Report from Study
  Country: US (occurrence: US)
  Receive Date: 20130419
  Receipt Date: 20130802
  Transmission Date: 20140515
  Serious: Yes (Hospitalization, Other)
  Sender: FDA-Public Use
  Company Number: US-VERTEX PHARMACEUTICALS INC.-2013-005167

PATIENT
  Age: 10 Year
  Sex: Female

DRUGS (8)
  1. VX-770 [Suspect]
     Indication: CYSTIC FIBROSIS
     Dosage: 150 MG, BID
     Dates: start: 20120814
  2. ALBUTEROL [Concomitant]
  3. PULMOZYME [Concomitant]
  4. ATROVENT [Concomitant]
  5. CREON [Concomitant]
  6. HYPERTONIC SALINE SOLUTION [Concomitant]
  7. AUGMENTIN [Concomitant]
  8. FLOVENT [Concomitant]

REACTIONS (9)
  - Pancreatitis [Unknown]
  - Infectious mononucleosis [Unknown]
  - Constipation [Unknown]
  - Spleen disorder [Unknown]
  - Haemoglobin decreased [Unknown]
  - Weight increased [Unknown]
  - Skin striae [Unknown]
  - Treatment noncompliance [Unknown]
  - Abdominal pain [Unknown]
